FAERS Safety Report 4362138-7 (Version None)
Quarter: 2004Q2

REPORT INFORMATION
  Report Type: 
  Country: None (occurrence: None)
  Receive Date: 20040517
  Receipt Date: 20040504
  Transmission Date: 20050107
  Serious: Yes (Hospitalization)
  Sender: FDA-Public Use
  Company Number: 2002097515US

PATIENT
  Age: 59 Year
  Sex: Male
  Weight: 63.9 kg

DRUGS (8)
  1. CAMPTOSAR [Suspect]
     Indication: OESOPHAGEAL CARCINOMA
     Dosage: 124.8 MG, CYCLIC, IV; SEE IMAGE
     Route: 042
     Dates: start: 20020304, end: 20020304
  2. CAMPTOSAR [Suspect]
     Indication: OESOPHAGEAL CARCINOMA
     Dosage: 124.8 MG, CYCLIC, IV; SEE IMAGE
     Route: 042
     Dates: start: 20020225
  3. COMPARATOR-CISPLATIN (CISPLATIN, CISPLATIN) INJECTION [Suspect]
     Indication: OESOPHAGEAL CARCINOMA
     Dosage: 57.6 MG, DAY 1 OF CYCLE 1, IV; SEE IMAGE
     Route: 042
     Dates: start: 20020304, end: 20020304
  4. COMPARATOR-CISPLATIN (CISPLATIN, CISPLATIN) INJECTION [Suspect]
     Indication: OESOPHAGEAL CARCINOMA
     Dosage: 57.6 MG, DAY 1 OF CYCLE 1, IV; SEE IMAGE
     Route: 042
     Dates: start: 20020225
  5. COLACE LIQUID (DOCUSATE SODIUM) [Suspect]
     Indication: LAXATIVE SUPPORTIVE CARE
     Dosage: 100 MG, BID
     Dates: start: 20020123, end: 20020312
  6. SORBITOL (SORBITOL) [Suspect]
     Indication: LAXATIVE SUPPORTIVE CARE
     Dosage: 30 ML, QD
     Dates: start: 20020123, end: 20020312
  7. METAMUCIL-2 [Suspect]
     Indication: LAXATIVE SUPPORTIVE CARE
     Dosage: 1 TBSP, QD
     Dates: start: 20020123, end: 20020312
  8. ERYTHROMYCIN ORAL SUS [Suspect]
     Indication: CONSTIPATION
     Dosage: 100 MG, QID
     Dates: start: 20020123, end: 20020314

REACTIONS (12)
  - ABDOMINAL PAIN [None]
  - BLOOD CREATININE DECREASED [None]
  - CLOSTRIDIUM COLITIS [None]
  - DEHYDRATION [None]
  - DIARRHOEA [None]
  - ELECTROLYTE IMBALANCE [None]
  - FREQUENT BOWEL MOVEMENTS [None]
  - HAEMOGLOBIN DECREASED [None]
  - HYPOKALAEMIA [None]
  - LETHARGY [None]
  - PLATELET COUNT DECREASED [None]
  - RASH [None]
